FAERS Safety Report 22191144 (Version 1)
Quarter: 2023Q2

REPORT INFORMATION
  Report Type: Spontaneous
  Country: ES (occurrence: ES)
  Receive Date: 20230410
  Receipt Date: 20230410
  Transmission Date: 20230722
  Serious: Yes (Other)
  Sender: FDA-Public Use
  Company Number: ES-PFIZER INC-PV202300061468

PATIENT
  Age: 44 Year
  Sex: Male

DRUGS (1)
  1. LYRICA [Suspect]
     Active Substance: PREGABALIN
     Indication: Intervertebral disc protrusion
     Dosage: 300 MILLIGRAM
     Route: 065
     Dates: start: 2015

REACTIONS (4)
  - Drug abuse [Unknown]
  - Withdrawal syndrome [Unknown]
  - Speech disorder [Unknown]
  - Product use in unapproved indication [Unknown]
